FAERS Safety Report 7981987-7 (Version None)
Quarter: 2011Q4

REPORT INFORMATION
  Report Type: 
  Country: None (occurrence: None)
  Receive Date: 20111213
  Receipt Date: 20111128
  Transmission Date: 20120403
  Serious: Yes (Hospitalization)
  Sender: FDA-Public Use
  Company Number: 2011SGN00313

PATIENT
  Age: 44 Year
  Sex: Female
  Weight: 60.0109 kg

DRUGS (9)
  1. CALCIUM CARBONATE [Concomitant]
  2. MULTIVITAMIN [Concomitant]
  3. FISH OIL (FISH OIL) [Concomitant]
  4. OMEPRAZOLE [Concomitant]
  5. HYDROCODONE BITARTRATE + ACETAMINOPHEN [Concomitant]
  6. TESSALON [Concomitant]
  7. BRENTUXIMAB VEDOTIN (BRENTUXIMAB VEDOTIN) INJECTION [Suspect]
     Indication: DIFFUSE LARGE B-CELL LYMPHOMA
     Dosage: 1.8 MG/KG, Q21D, INTRAVENOUS
     Route: 042
     Dates: start: 20110728, end: 20110928
  8. ACYCLOVIR [Concomitant]
  9. BACTRIM [Concomitant]

REACTIONS (2)
  - ORGANISING PNEUMONIA [None]
  - PNEUMOTHORAX [None]
